FAERS Safety Report 18115518 (Version 2)
Quarter: 2020Q3

REPORT INFORMATION
  Report Type: Spontaneous
  Country: AU (occurrence: AU)
  Receive Date: 20200805
  Receipt Date: 20200828
  Transmission Date: 20201103
  Serious: Yes (Other)
  Sender: FDA-Public Use
  Company Number: AU-JNJFOC-20200743167

PATIENT
  Age: 38 Year
  Sex: Male

DRUGS (3)
  1. KETAMINE [Suspect]
     Active Substance: KETAMINE
     Indication: PANCREATITIS ACUTE
     Route: 065
  2. ROCURONIUM BROMIDE. [Suspect]
     Active Substance: ROCURONIUM BROMIDE
     Indication: PANCREATITIS ACUTE
     Route: 065
  3. DUROGESIC [Suspect]
     Active Substance: FENTANYL
     Indication: PANCREATITIS ACUTE
     Route: 062

REACTIONS (7)
  - Parasympathetic nerve injury [Unknown]
  - Pulseless electrical activity [Unknown]
  - Abdominal distension [Unknown]
  - Autonomic nervous system imbalance [Unknown]
  - Bradycardia [Unknown]
  - Pulmonary function test decreased [Unknown]
  - Vagus nerve disorder [Unknown]
